FAERS Safety Report 4951748-1 (Version None)
Quarter: 2006Q1

REPORT INFORMATION
  Report Type: 
  Country: None (occurrence: None)
  Receive Date: 20060323
  Receipt Date: 20060314
  Transmission Date: 20060701
  Serious: Yes (Hospitalization)
  Sender: FDA-Public Use
  Company Number: FR-GLAXOSMITHKLINE-B0416028A

PATIENT
  Sex: Female

DRUGS (2)
  1. SALBUMOL [Suspect]
     Indication: PREMATURE LABOUR
     Dosage: 1MG SINGLE DOSE
     Route: 054
     Dates: start: 20060314, end: 20060314
  2. SALBUMOL [Suspect]
     Indication: PROPHYLAXIS
     Route: 065
     Dates: start: 20050101, end: 20050101

REACTIONS (3)
  - DRUG EXPOSURE DURING PREGNANCY [None]
  - LARYNGEAL OEDEMA [None]
  - RESPIRATORY DISTRESS [None]
